FAERS Safety Report 8184144-7 (Version None)
Quarter: 2012Q1

REPORT INFORMATION
  Report Type: 
  Country: None (occurrence: None)
  Receive Date: 20120305
  Receipt Date: 20120227
  Transmission Date: 20120608
  Serious: Yes (Other)
  Sender: FDA-Public Use
  Company Number: JP-PFIZER INC-2011283544

PATIENT
  Age: 73 Year
  Sex: Male

DRUGS (5)
  1. VFEND [Suspect]
     Dosage: 200 MG, 1X/DAY
     Route: 048
     Dates: start: 20110801, end: 20111119
  2. CINACALCET HYDROCHLORIDE [Concomitant]
     Dosage: 0.5 DF, 1X/DAY
     Route: 048
     Dates: end: 20111112
  3. CINACALCET HYDROCHLORIDE [Concomitant]
     Dosage: 1 DF, 1X/DAY
     Route: 048
     Dates: start: 20111113
  4. LOCHOLEST [Concomitant]
     Route: 048
  5. CALBLOCK [Concomitant]
     Route: 048

REACTIONS (3)
  - BLOOD PRESSURE DECREASED [None]
  - SOMNOLENCE [None]
  - LOSS OF CONSCIOUSNESS [None]
